FAERS Safety Report 7878581-5 (Version None)
Quarter: 2011Q4

REPORT INFORMATION
  Report Type: 
  Country: None (occurrence: None)
  Receive Date: 20111101
  Receipt Date: 20111101
  Transmission Date: 20120403
  Serious: No
  Sender: FDA-Public Use
  Company Number: None

PATIENT
  Age: 58 Year
  Sex: Male
  Weight: 72.574 kg

DRUGS (1)
  1. WELLBUTRIN [Suspect]
     Indication: DEPRESSION
     Dosage: 300MG
     Route: 048
     Dates: start: 20101205, end: 20110113

REACTIONS (2)
  - DRUG INEFFECTIVE [None]
  - PRODUCT COLOUR ISSUE [None]
